FAERS Safety Report 8291552-2 (Version None)
Quarter: 2012Q2

REPORT INFORMATION
  Report Type: 
  Country: None (occurrence: None)
  Receive Date: 20120417
  Receipt Date: 20120412
  Transmission Date: 20120825
  Serious: Yes (Other)
  Sender: FDA-Public Use
  Company Number: PHEH2012US007831

PATIENT

DRUGS (1)
  1. EXFORGE HCT [Suspect]
     Dosage: UNK UKN, UNK

REACTIONS (1)
  - VASCULAR OCCLUSION [None]
